FAERS Safety Report 15076962 (Version 1)
Quarter: 2018Q2

REPORT INFORMATION
  Report Type: Spontaneous
  Country: US (occurrence: US)
  Receive Date: 20180607
  Receipt Date: 20180607
  Transmission Date: 20180711
  Serious: Yes (Other)
  Sender: FDA-Public Use
  Company Number: None

PATIENT
  Age: 42 Year
  Sex: Female
  Weight: 71.21 kg

DRUGS (1)
  1. NORGESTIMATE 0.18/0.215/0.25MG ETHINYL ESTRADIOL 25MG [Suspect]
     Active Substance: ETHINYL ESTRADIOL\NORGESTIMATE
     Indication: CONTRACEPTION
     Route: 048
     Dates: start: 20170808, end: 20171009

REACTIONS (3)
  - Headache [None]
  - Dyspnoea [None]
  - Hypoaesthesia [None]
